FAERS Safety Report 4481875-7 (Version None)
Quarter: 2004Q4

REPORT INFORMATION
  Report Type: 
  Country: None (occurrence: None)
  Receive Date: 20041020
  Receipt Date: 20041011
  Transmission Date: 20050328
  Serious: Yes (Death, Other)
  Sender: FDA-Public Use
  Company Number: GB-2004-032745

PATIENT
  Age: 70 Year
  Sex: Female
  Weight: 60 kg

DRUGS (9)
  1. CAMPATH [Suspect]
     Indication: T-CELL PROLYMPHOCYTIC LEUKAEMIA
     Dosage: 30 MG, SUBCUTANEOUS
     Route: 058
     Dates: start: 20040823, end: 20040907
  2. INSULATARD NPH HUMAN [Concomitant]
  3. ALLOPURINOL [Concomitant]
  4. ITRACONAZOLE [Concomitant]
  5. CO-TRIMOXAZOLE (CO-TRIMOXAZOLE) [Concomitant]
  6. ACYCLOVIR [Concomitant]
  7. TINZAPARIN SODIUM (HEPARIN-FRACTION, SODIUM SALT) [Concomitant]
  8. LANSOPRAZOLE [Concomitant]
  9. AUGMENTIN '125' [Concomitant]

REACTIONS (8)
  - BLOOD ALBUMIN DECREASED [None]
  - CARDIAC FAILURE CONGESTIVE [None]
  - GENERAL PHYSICAL HEALTH DETERIORATION [None]
  - OEDEMA PERIPHERAL [None]
  - ORBITAL OEDEMA [None]
  - PERIPHERAL CIRCULATORY FAILURE [None]
  - PLEURAL EFFUSION [None]
  - SEPSIS [None]
